FAERS Safety Report 5194127-7 (Version None)
Quarter: 2006Q4

REPORT INFORMATION
  Report Type: 
  Country: None (occurrence: None)
  Receive Date: 20061220
  Receipt Date: 20061208
  Transmission Date: 20070319
  Serious: Yes (Death)
  Sender: FDA-Public Use
  Company Number: HQWYE764111DEC06

PATIENT
  Age: 35 Year
  Sex: Male

DRUGS (3)
  1. EFFEXOR XR [Suspect]
     Indication: DEPRESSION
     Dosage: 75 MG 1X PER 1 DAY, ORAL
     Route: 048
     Dates: start: 20040601, end: 20060319
  2. ATENOLOL [Concomitant]
  3. LASIX [Concomitant]

REACTIONS (3)
  - ARTERIOSCLEROSIS [None]
  - DRUG SCREEN POSITIVE [None]
  - FALSE POSITIVE LABORATORY RESULT [None]
